FAERS Safety Report 15309425 (Version 1)
Quarter: 2018Q3

REPORT INFORMATION
  Report Type: Spontaneous
  Country: US (occurrence: US)
  Receive Date: 20180811
  Receipt Date: 20180811
  Transmission Date: 20181010
  Serious: Yes (Hospitalization)
  Sender: FDA-Public Use
  Company Number: None

PATIENT
  Age: 75 Year
  Sex: Male
  Weight: 106.5 kg

DRUGS (2)
  1. LEUPROLIDE ACETATE. [Suspect]
     Active Substance: LEUPROLIDE ACETATE
     Dates: end: 20180131
  2. CASODEX [Suspect]
     Active Substance: BICALUTAMIDE
     Dates: end: 20180702

REACTIONS (12)
  - Atrial fibrillation [None]
  - Hypokalaemia [None]
  - Leukocytosis [None]
  - Chills [None]
  - Urinary casts [None]
  - Meningioma [None]
  - Haematuria [None]
  - Peripheral swelling [None]
  - Asthenia [None]
  - Rhabdomyolysis [None]
  - Cystitis [None]
  - Cellulitis [None]

NARRATIVE: CASE EVENT DATE: 20180704
